FAERS Safety Report 10133536 (Version 1)
Quarter: 2014Q2

REPORT INFORMATION
  Report Type: Spontaneous
  Country: JP (occurrence: JP)
  Receive Date: 20140428
  Receipt Date: 20140428
  Transmission Date: 20141212
  Serious: Yes (Other)
  Sender: FDA-Public Use
  Company Number: JP-ACTAVIS-2014-08043

PATIENT
  Age: 68 Year
  Sex: Male

DRUGS (1)
  1. TRIAMCINOLONE ACETONIDE (AMALLC) [Suspect]
     Indication: PROPHYLAXIS
     Dosage: 2 MG, SINGLE (0.2 ML) IN 5 MM INTERVALS AT EACH SITE ON POSTOPERATIVE DAY 5

REACTIONS (3)
  - Cytomegalovirus gastrointestinal infection [Recovered/Resolved]
  - Gastric ulcer [Recovered/Resolved]
  - Condition aggravated [Recovered/Resolved]
